FAERS Safety Report 25043883 (Version 1)
Quarter: 2025Q1

REPORT INFORMATION
  Report Type: Report from Study
  Country: US (occurrence: US)
  Receive Date: 20250306
  Receipt Date: 20250306
  Transmission Date: 20250408
  Serious: Yes (Hospitalization, Other)
  Sender: ABBVIE
  Company Number: US-ABBVIE-6155301

PATIENT
  Sex: Female

DRUGS (1)
  1. SKYRIZI [Suspect]
     Active Substance: RISANKIZUMAB-RZAA
     Indication: Psoriasis
     Route: 058

REACTIONS (7)
  - Cardiac operation [Unknown]
  - Fall [Unknown]
  - Rib fracture [Unknown]
  - Cystitis [Unknown]
  - Contusion [Unknown]
  - Hospitalisation [Unknown]
  - Device issue [Unknown]
